FAERS Safety Report 15590362 (Version 1)
Quarter: 2018Q4

REPORT INFORMATION
  Report Type: Spontaneous
  Country: US (occurrence: US)
  Receive Date: 20181106
  Receipt Date: 20181106
  Transmission Date: 20190205
  Serious: No
  Sender: FDA-Public Use
  Company Number: US-PFIZER INC-2017369862

PATIENT
  Age: 50 Year
  Sex: Male

DRUGS (2)
  1. SOMAVERT [Suspect]
     Active Substance: PEGVISOMANT
     Indication: ACROMEGALY
     Dosage: 30 MG, DAILY
     Route: 058
     Dates: start: 201104
  2. SOMAVERT [Suspect]
     Active Substance: PEGVISOMANT
     Dosage: 30 MG, DAILY

REACTIONS (10)
  - Vitamin B12 increased [Unknown]
  - Blood cholesterol increased [Unknown]
  - High density lipoprotein decreased [Unknown]
  - Low density lipoprotein increased [Unknown]
  - Albumin globulin ratio decreased [Unknown]
  - Thyroxine free increased [Unknown]
  - Prostatic specific antigen increased [Unknown]
  - Blood bilirubin increased [Unknown]
  - Insulin-like growth factor increased [Unknown]
  - Haematocrit increased [Unknown]
